FAERS Safety Report 19278629 (Version 1)
Quarter: 2021Q2

REPORT INFORMATION
  Report Type: Spontaneous
  Country: CA (occurrence: CA)
  Receive Date: 20210520
  Receipt Date: 20210520
  Transmission Date: 20210717
  Serious: Yes (Other)
  Sender: FDA-Public Use
  Company Number: CA-LEO PHARMA-336471

PATIENT
  Age: 79 Year
  Sex: Female

DRUGS (7)
  1. DOVONEX [Suspect]
     Active Substance: CALCIPOTRIENE
     Indication: PRECANCEROUS SKIN LESION
     Dates: start: 20210421, end: 20210427
  2. DOVONEX [Suspect]
     Active Substance: CALCIPOTRIENE
     Indication: PRECANCEROUS SKIN LESION
     Dosage: DOSAGE : TWICE DAILY FOR 10 DAYS
     Dates: start: 20210504
  3. ROSUVASTATIN. [Concomitant]
     Active Substance: ROSUVASTATIN
     Indication: BLOOD CHOLESTEROL INCREASED
  4. EFUDEX [Suspect]
     Active Substance: FLUOROURACIL
     Indication: PRECANCEROUS SKIN LESION
     Dosage: TWICE DAILY FOR 10 DAYS
     Dates: start: 20210504
  5. DOVONEX [Suspect]
     Active Substance: CALCIPOTRIENE
     Indication: PRECANCEROUS SKIN LESION
     Dosage: DOSAGE : TWICE DAILY FOR 10 DAYS
     Dates: start: 20210504
  6. DOVONEX [Suspect]
     Active Substance: CALCIPOTRIENE
     Indication: PRECANCEROUS SKIN LESION
     Dates: start: 20210421, end: 20210427
  7. EFUDEX [Suspect]
     Active Substance: FLUOROURACIL
     Indication: PRECANCEROUS SKIN LESION
     Dates: start: 20210421, end: 20210427

REACTIONS (7)
  - Off label use [Unknown]
  - Skin reaction [Not Recovered/Not Resolved]
  - Skin disorder [Not Recovered/Not Resolved]
  - Burning sensation [Not Recovered/Not Resolved]
  - Erythema [Not Recovered/Not Resolved]
  - Precancerous skin lesion [Not Recovered/Not Resolved]
  - Pain of skin [Not Recovered/Not Resolved]

NARRATIVE: CASE EVENT DATE: 20210422
